FAERS Safety Report 6234153-X (Version None)
Quarter: 2009Q2

REPORT INFORMATION
  Report Type: 
  Country: None (occurrence: None)
  Receive Date: 20090618
  Receipt Date: 20090611
  Transmission Date: 20091009
  Serious: No
  Sender: FDA-Public Use
  Company Number: US-BAYER-200923468NA

PATIENT
  Age: 36 Year
  Sex: Female
  Weight: 64 kg

DRUGS (1)
  1. MIRENA [Suspect]
     Indication: VAGINAL HAEMORRHAGE
     Dosage: CONTINUOUS
     Route: 015
     Dates: start: 20080901, end: 20090511

REACTIONS (5)
  - ACNE [None]
  - ALOPECIA [None]
  - LIBIDO DECREASED [None]
  - ONYCHOCLASIS [None]
  - WEIGHT INCREASED [None]
